FAERS Safety Report 5714588-1 (Version None)
Quarter: 2008Q2

REPORT INFORMATION
  Report Type: 
  Country: None (occurrence: None)
  Receive Date: 20080423
  Receipt Date: 20080409
  Transmission Date: 20081010
  Serious: Yes (Hospitalization, Congenital Anomaly)
  Sender: FDA-Public Use
  Company Number: A0681864A

PATIENT
  Sex: Female
  Weight: 3 kg

DRUGS (4)
  1. PAXIL CR [Suspect]
     Indication: ANXIETY
     Dosage: 25MG PER DAY
     Dates: start: 20031001, end: 20040501
  2. AMOXICILLIN [Concomitant]
     Dates: start: 20030101, end: 20040101
  3. PROMETHAZINE [Concomitant]
     Dates: start: 20030101, end: 20070101
  4. VITAMIN TAB [Concomitant]

REACTIONS (7)
  - ANOMALOUS PULMONARY VENOUS CONNECTION [None]
  - ATRIAL SEPTAL DEFECT [None]
  - BICUSPID AORTIC VALVE [None]
  - DRUG EXPOSURE DURING PREGNANCY [None]
  - HEART DISEASE CONGENITAL [None]
  - PATENT DUCTUS ARTERIOSUS [None]
  - RESPIRATORY DISTRESS [None]
